FAERS Safety Report 13717429 (Version 1)
Quarter: 2017Q3

REPORT INFORMATION
  Report Type: Spontaneous
  Country: None (occurrence: US)
  Receive Date: 20170703
  Receipt Date: 20170703
  Transmission Date: 20171127
  Serious: No
  Sender: FDA-Public Use
  Company Number: None

PATIENT
  Sex: Female

DRUGS (1)
  1. HUMIRA [Suspect]
     Active Substance: ADALIMUMAB
     Indication: CROHN^S DISEASE
     Dosage: 160 MG ON DAY 1 OF CROHN^S STARTER KIT NA SUBQ
     Route: 058
     Dates: start: 201606

REACTIONS (4)
  - Tongue discomfort [None]
  - Insomnia [None]
  - Lymph node pain [None]
  - Throat irritation [None]
